FAERS Safety Report 6004783-9 (Version None)
Quarter: 2008Q4

REPORT INFORMATION
  Report Type: 
  Country: None (occurrence: None)
  Receive Date: 20081215
  Receipt Date: 20000828
  Transmission Date: 20090506
  Serious: Yes (Death)
  Sender: FDA-Public Use
  Company Number: 2008BH010439

PATIENT
  Age: 62 Year
  Sex: Female

DRUGS (2)
  1. HEPARIN SODIUM 5,000 UNITS IN DEXTROSE 5% [Suspect]
     Indication: ENDOCARDITIS BACTERIAL
     Dosage: 25000 UNITS;IV
     Route: 042
     Dates: start: 20000802, end: 20000812
  2. REFLUDAN [Concomitant]

REACTIONS (3)
  - CEREBRAL HAEMORRHAGE [None]
  - DEATH [None]
  - HEPARIN-INDUCED THROMBOCYTOPENIA [None]
